FAERS Safety Report 7288128-2 (Version None)
Quarter: 2011Q1

REPORT INFORMATION
  Report Type: 
  Country: None (occurrence: None)
  Receive Date: 20110211
  Receipt Date: 20110201
  Transmission Date: 20110831
  Serious: Yes (Hospitalization)
  Sender: FDA-Public Use
  Company Number: FR-JNJFOC-20110102712

PATIENT
  Age: 73 Year
  Sex: Male

DRUGS (9)
  1. LOVENOX [Concomitant]
     Route: 065
  2. FLAGYL [Suspect]
     Indication: CHOLANGITIS
     Route: 048
     Dates: start: 20101110, end: 20101130
  3. CISPLATIN [Suspect]
     Indication: PRODUCT USED FOR UNKNOWN INDICATION
     Route: 042
  4. FLUOROURACIL [Concomitant]
     Route: 065
  5. TAVANIC [Suspect]
     Indication: CHOLANGITIS
     Route: 048
     Dates: start: 20101120, end: 20101130
  6. ESOMEPRAZOLE [Concomitant]
     Route: 065
  7. TAXOTERE [Concomitant]
     Route: 065
  8. ROCEPHIN [Concomitant]
     Route: 065
  9. ASPIRIN [Concomitant]
     Route: 065

REACTIONS (4)
  - THROMBOCYTOPENIA [None]
  - NEUTROPENIA [None]
  - DUODENAL ULCER HAEMORRHAGE [None]
  - MELAENA [None]
